FAERS Safety Report 5143434-2 (Version None)
Quarter: 2006Q4

REPORT INFORMATION
  Report Type: 
  Country: None (occurrence: None)
  Receive Date: 20061103
  Receipt Date: 20061026
  Transmission Date: 20070319
  Serious: Yes (Hospitalization, Other)
  Sender: FDA-Public Use
  Company Number: US-MERCK-0610USA14283

PATIENT
  Age: 22 Year
  Sex: Male

DRUGS (5)
  1. SINGULAIR [Suspect]
     Route: 048
  2. VERAPAMIL [Concomitant]
     Route: 065
  3. DEPAKOTE [Concomitant]
     Route: 065
  4. LAMICTAL [Concomitant]
     Route: 065
  5. LORAZEPAM [Concomitant]
     Route: 065

REACTIONS (5)
  - ABNORMAL BEHAVIOUR [None]
  - AGITATION [None]
  - ANXIETY [None]
  - CONVULSION [None]
  - HYPERTENSION [None]
